FAERS Safety Report 8189879-8 (Version None)
Quarter: 2012Q1

REPORT INFORMATION
  Report Type: 
  Country: None (occurrence: None)
  Receive Date: 20120307
  Receipt Date: 20120223
  Transmission Date: 20120608
  Serious: No
  Sender: FDA-Public Use
  Company Number: US-B.I. PHARMACEUTICALS,INC./RIDGEFIELD-2012-BP-01940BP

PATIENT
  Sex: Female

DRUGS (10)
  1. SIMVASTATIN [Concomitant]
     Route: 048
     Dates: start: 20110101
  2. LOSARTAN POTASSIUM [Concomitant]
     Route: 048
     Dates: start: 20110101
  3. COZAAR [Concomitant]
  4. TRAZODONE HCL [Concomitant]
     Route: 048
     Dates: start: 20110101
  5. ZOCOR [Concomitant]
  6. AGGRENOX [Suspect]
     Indication: PROPHYLAXIS
     Route: 048
     Dates: start: 20110101
  7. MULTI-VITAMIN [Concomitant]
     Indication: PROPHYLAXIS
     Route: 048
     Dates: start: 20110101
  8. VITAMIN D [Concomitant]
     Indication: PROPHYLAXIS
     Route: 048
  9. CALCIUM [Concomitant]
     Indication: PROPHYLAXIS
     Route: 048
  10. KLONOPIN [Concomitant]
     Dosage: 0.5 MG
     Route: 048

REACTIONS (2)
  - ASTHENIA [None]
  - GAIT DISTURBANCE [None]
